FAERS Safety Report 18401378 (Version 6)
Quarter: 2021Q1

REPORT INFORMATION
  Report Type: Report from Study
  Country: MX (occurrence: MX)
  Receive Date: 20201019
  Receipt Date: 20210330
  Transmission Date: 20210419
  Serious: Yes (Other)
  Sender: FDA-Public Use
  Company Number: NVSC2020MX278767

PATIENT
  Sex: Male
  Weight: 70 kg

DRUGS (2)
  1. EXFORGE HCT [Suspect]
     Active Substance: AMLODIPINE BESYLATE\HYDROCHLOROTHIAZIDE\VALSARTAN
     Indication: HYPERTENSION
     Dosage: 1 DF, QD (STARTED 16 YEARS AGO OR MORE)
     Route: 048
  2. EXFORGE HCT [Suspect]
     Active Substance: AMLODIPINE BESYLATE\HYDROCHLOROTHIAZIDE\VALSARTAN
     Indication: PULMONARY OEDEMA

REACTIONS (24)
  - Musculoskeletal pain [Unknown]
  - Pain in extremity [Unknown]
  - Headache [Recovering/Resolving]
  - Product use in unapproved indication [Unknown]
  - Cardiac murmur [Unknown]
  - Feeling hot [Unknown]
  - Renal disorder [Unknown]
  - Fluid retention [Unknown]
  - Paraesthesia [Not Recovered/Not Resolved]
  - Peripheral swelling [Not Recovered/Not Resolved]
  - Burning sensation [Not Recovered/Not Resolved]
  - Throat irritation [Unknown]
  - Cardiomegaly [Not Recovered/Not Resolved]
  - Blood pressure fluctuation [Unknown]
  - Blood uric acid increased [Not Recovered/Not Resolved]
  - Blood cholesterol increased [Unknown]
  - Hyperhidrosis [Not Recovered/Not Resolved]
  - Visual impairment [Not Recovered/Not Resolved]
  - Lung disorder [Unknown]
  - Dyspnoea [Unknown]
  - Illness [Not Recovered/Not Resolved]
  - Blood triglycerides increased [Unknown]
  - Influenza [Unknown]
  - Dizziness [Unknown]
